FAERS Safety Report 10368503 (Version 1)
Quarter: 2014Q3

REPORT INFORMATION
  Report Type: Spontaneous
  Country: US (occurrence: None)
  Receive Date: 20140806
  Receipt Date: 20140806
  Transmission Date: 20150326
  Serious: Yes (Life-Threatening)
  Sender: FDA-Public Use
  Company Number: None

PATIENT
  Age: 43 Year
  Sex: Female

DRUGS (1)
  1. CIMZIA [Suspect]
     Active Substance: CERTOLIZUMAB PEGOL
     Indication: RHEUMATOID ARTHRITIS
     Dosage: 400MG?ONCE AT WKS 0,2,4 ?SUBCUTANEOUSLY
     Route: 058
     Dates: start: 20140711, end: 201408

REACTIONS (2)
  - Apparent death [None]
  - Hypersensitivity [None]

NARRATIVE: CASE EVENT DATE: 201407
